FAERS Safety Report 10202832 (Version 1)
Quarter: 2014Q2

REPORT INFORMATION
  Report Type: Spontaneous
  Country: US (occurrence: US)
  Receive Date: 20140522
  Receipt Date: 20140522
  Transmission Date: 20141212
  Serious: No
  Sender: FDA-Public Use
  Company Number: US-SA-2014SA036892

PATIENT
  Age: 73 Year
  Sex: Female

DRUGS (2)
  1. LANTUS SOLOSTAR [Suspect]
     Indication: TYPE 2 DIABETES MELLITUS
     Dosage: DOSE: 10U AM 5 IU PM
     Route: 065
  2. SOLOSTAR [Concomitant]

REACTIONS (2)
  - Dysgeusia [Not Recovered/Not Resolved]
  - Inappropriate schedule of drug administration [Unknown]
